FAERS Safety Report 4925082-X (Version None)
Quarter: 2006Q1

REPORT INFORMATION
  Report Type: 
  Country: None (occurrence: None)
  Receive Date: 20060222
  Receipt Date: 20060209
  Transmission Date: 20060701
  Serious: Yes (Other)
  Sender: FDA-Public Use
  Company Number: 2006020637

PATIENT
  Sex: Male
  Weight: 97.5234 kg

DRUGS (4)
  1. VIAGRA [Suspect]
     Indication: ERECTILE DYSFUNCTION
     Dosage: AS NECESSARY, ORAL
     Route: 048
  2. ASPIRIN [Concomitant]
  3. FOLIC ACID [Concomitant]
  4. CALCIUM WITH VITAMIN D (CALCIUM PHOSPHATE, CALCIUM SODIUM LACTATE, ERG [Suspect]

REACTIONS (5)
  - ARTERIAL OCCLUSIVE DISEASE [None]
  - BODY HEIGHT DECREASED [None]
  - DRUG INEFFECTIVE [None]
  - OSTEOPOROSIS [None]
  - WEIGHT DECREASED [None]
